FAERS Safety Report 7528255-5 (Version None)
Quarter: 2011Q2

REPORT INFORMATION
  Report Type: 
  Country: None (occurrence: None)
  Receive Date: 20110607
  Receipt Date: 20100611
  Transmission Date: 20111010
  Serious: No
  Sender: FDA-Public Use
  Company Number: US-ASTRAZENECA-2010SE22378

PATIENT
  Sex: Male

DRUGS (1)
  1. PRILOSEC [Suspect]
     Route: 048
     Dates: start: 20090101, end: 20100501

REACTIONS (6)
  - TONGUE COATED [None]
  - GLOSSODYNIA [None]
  - TONGUE DISORDER [None]
  - FUNGAL INFECTION [None]
  - ABDOMINAL PAIN UPPER [None]
  - BLOOD CHOLESTEROL DECREASED [None]
